FAERS Safety Report 6893704-2 (Version None)
Quarter: 2010Q3

REPORT INFORMATION
  Report Type: 
  Country: None (occurrence: None)
  Receive Date: 20100731
  Receipt Date: 20100513
  Transmission Date: 20110219
  Serious: Yes (Life-Threatening, Other)
  Sender: FDA-Public Use
  Company Number: US-PFIZER INC-2008042216

PATIENT
  Sex: Female

DRUGS (2)
  1. NEURONTIN [Suspect]
     Indication: PAIN
     Dosage: UNK
  2. PHENOBARBITAL [Concomitant]
     Dosage: UNK

REACTIONS (4)
  - CEREBROVASCULAR ACCIDENT [None]
  - DISABILITY [None]
  - FALL [None]
  - LOWER LIMB FRACTURE [None]
